FAERS Safety Report 5231102-8 (Version None)
Quarter: 2007Q1

REPORT INFORMATION
  Report Type: 
  Country: None (occurrence: None)
  Receive Date: 20070206
  Receipt Date: 20070201
  Transmission Date: 20070707
  Serious: Yes (Other)
  Sender: FDA-Public Use
  Company Number: FR-GLAXOSMITHKLINE-B0456818A

PATIENT
  Sex: Male

DRUGS (7)
  1. PAROXETINE HCL [Suspect]
     Indication: DEPRESSION
     Route: 048
     Dates: start: 20060101
  2. MILLEPERTUIS [Suspect]
     Indication: DEPRESSION
     Route: 065
     Dates: start: 20061001, end: 20061101
  3. NEBILOX [Concomitant]
     Indication: HYPERTENSION
     Route: 065
  4. HYPERIUM [Concomitant]
     Indication: HYPERTENSION
     Route: 065
     Dates: end: 20060101
  5. OLMESARTAN MEDOXOMIL [Concomitant]
     Indication: HYPERTENSION
     Route: 065
     Dates: start: 20060101
  6. HYDROCHLOROTHIAZIDE [Concomitant]
     Indication: HYPERTENSION
     Route: 065
     Dates: start: 20060101
  7. AMLOR [Concomitant]
     Indication: HYPERTENSION
     Dosage: 10MG PER DAY
     Route: 065
     Dates: start: 20060101

REACTIONS (6)
  - AGGRESSION [None]
  - CONFUSIONAL STATE [None]
  - DRUG INTERACTION [None]
  - HYPERSOMNIA [None]
  - HYPERTENSION [None]
  - SUDDEN ONSET OF SLEEP [None]
